FAERS Safety Report 7351919-3 (Version None)
Quarter: 2011Q1

REPORT INFORMATION
  Report Type: 
  Country: None (occurrence: None)
  Receive Date: 20110315
  Receipt Date: 20110302
  Transmission Date: 20110831
  Serious: Yes (Other)
  Sender: FDA-Public Use
  Company Number: US-CELGENEUS-163-20785-11030796

PATIENT
  Age: 74 Year
  Sex: Male
  Weight: 63.56 kg

DRUGS (2)
  1. THALOMID [Suspect]
     Dosage: 200 MILLIGRAM
     Route: 048
  2. DEXAMETHASONE [Concomitant]
     Route: 065

REACTIONS (1)
  - ADVERSE DRUG REACTION [None]
